FAERS Safety Report 13617840 (Version 1)
Quarter: 2017Q2

REPORT INFORMATION
  Report Type: Spontaneous
  Country: US (occurrence: US)
  Receive Date: 20170606
  Receipt Date: 20170606
  Transmission Date: 20170830
  Serious: Yes (Hospitalization, Other)
  Sender: FDA-Public Use
  Company Number: US-TEVA-774881USA

PATIENT
  Age: 78 Year
  Sex: Male

DRUGS (21)
  1. HYDROCHLOROTHIAZIDE. [Concomitant]
     Active Substance: HYDROCHLOROTHIAZIDE
  2. LASIX [Concomitant]
     Active Substance: FUROSEMIDE
  3. IRON [Concomitant]
     Active Substance: IRON
  4. AMLODIPINE [Concomitant]
     Active Substance: AMLODIPINE BESYLATE
  5. PRILOSEC [Concomitant]
     Active Substance: OMEPRAZOLE MAGNESIUM
  6. VALTREX [Concomitant]
     Active Substance: VALACYCLOVIR HYDROCHLORIDE
  7. ASPIRIN. [Concomitant]
     Active Substance: ASPIRIN
  8. DANAZOL. [Suspect]
     Active Substance: DANAZOL
     Dates: start: 2017
  9. CARAC [Concomitant]
     Active Substance: FLUOROURACIL
  10. LOSARTAN. [Concomitant]
     Active Substance: LOSARTAN
  11. METOPROLOL TARTRATE. [Concomitant]
     Active Substance: METOPROLOL TARTRATE
  12. PLAVIX [Concomitant]
     Active Substance: CLOPIDOGREL BISULFATE
  13. BETAPACE [Concomitant]
     Active Substance: SOTALOL HYDROCHLORIDE
  14. SINEMET [Concomitant]
     Active Substance: CARBIDOPA\LEVODOPA
  15. CRESTOR [Concomitant]
     Active Substance: ROSUVASTATIN CALCIUM
  16. JAKAFI [Suspect]
     Active Substance: RUXOLITINIB
     Indication: MYELOFIBROSIS
     Dosage: 20 MILLIGRAM DAILY;
     Route: 048
     Dates: end: 201702
  17. ACYCLOVIR. [Concomitant]
     Active Substance: ACYCLOVIR
  18. ALLOPURINOL. [Concomitant]
     Active Substance: ALLOPURINOL
  19. COUMADIN [Concomitant]
     Active Substance: WARFARIN SODIUM
  20. NORCO [Concomitant]
     Active Substance: ACETAMINOPHEN\HYDROCODONE BITARTRATE
  21. BISOPROLOL [Concomitant]
     Active Substance: BISOPROLOL

REACTIONS (5)
  - Influenza [Unknown]
  - Pneumonia [Unknown]
  - Transfusion reaction [Recovering/Resolving]
  - Pruritus [Unknown]
  - Herpes zoster [Unknown]

NARRATIVE: CASE EVENT DATE: 2017
